FAERS Safety Report 8364523-5 (Version None)
Quarter: 2012Q2

REPORT INFORMATION
  Report Type: 
  Country: None (occurrence: None)
  Receive Date: 20120516
  Receipt Date: 20120509
  Transmission Date: 20120825
  Serious: Yes (Hospitalization, Other)
  Sender: FDA-Public Use
  Company Number: US-MERCK-1110USA03839

PATIENT
  Age: 77 Year
  Sex: Female
  Weight: 60 kg

DRUGS (8)
  1. ASCORBIC ACID [Concomitant]
     Route: 065
     Dates: start: 19900101
  2. NEXIUM [Concomitant]
     Route: 065
     Dates: end: 20080101
  3. FOSAMAX [Suspect]
     Indication: OSTEOPOROSIS
     Route: 048
     Dates: start: 20020401, end: 20090501
  4. PREMARIN [Concomitant]
     Indication: HORMONE THERAPY
     Route: 048
  5. VITAMIN B (UNSPECIFIED) [Concomitant]
     Route: 065
     Dates: start: 19900101
  6. CALCIUM (UNSPECIFIED) [Concomitant]
     Route: 065
     Dates: start: 19900101
  7. PROTONIX [Concomitant]
     Route: 065
     Dates: end: 20080101
  8. VITAMINS (UNSPECIFIED) [Concomitant]
     Route: 065
     Dates: start: 19900101

REACTIONS (16)
  - LACUNAR INFARCTION [None]
  - REGURGITATION [None]
  - DYSPHAGIA [None]
  - PELVIC FRACTURE [None]
  - FEMUR FRACTURE [None]
  - HYPERTENSION [None]
  - GASTRIC POLYPS [None]
  - FALL [None]
  - CEREBROVASCULAR ACCIDENT [None]
  - HEAD INJURY [None]
  - GASTRITIS [None]
  - CREATININE RENAL CLEARANCE DECREASED [None]
  - PEPTIC ULCER [None]
  - HIATUS HERNIA [None]
  - OSTEOARTHRITIS [None]
  - FOREIGN BODY SENSATION IN EYES [None]
